FAERS Safety Report 4366501-X (Version None)
Quarter: 2004Q2

REPORT INFORMATION
  Report Type: 
  Country: None (occurrence: None)
  Receive Date: 20040527
  Receipt Date: 20040428
  Transmission Date: 20050107
  Serious: No
  Sender: FDA-Public Use
  Company Number: US-BRISTOL-MYERS SQUIBB COMPANY-12573143

PATIENT
  Sex: Male

DRUGS (4)
  1. ERBITUX [Suspect]
     Indication: COLON CANCER
     Route: 042
     Dates: start: 20040322, end: 20040322
  2. GLUCOPHAGE [Concomitant]
  3. DIABETA [Concomitant]
  4. LISINOPRIL [Concomitant]

REACTIONS (1)
  - RASH [None]
